FAERS Safety Report 11400773 (Version 1)
Quarter: 2015Q3

REPORT INFORMATION
  Report Type: Report from Study
  Country: IT (occurrence: IT)
  Receive Date: 20150820
  Receipt Date: 20150820
  Transmission Date: 20151125
  Serious: Yes (Death, Other)
  Sender: FDA-Public Use
  Company Number: IT-TEVA-586953ACC

PATIENT
  Age: 63 Year
  Sex: Female

DRUGS (2)
  1. SOFOSBUVIR [Suspect]
     Active Substance: SOFOSBUVIR
     Indication: HEPATITIS C
     Route: 065
  2. RIBAVIRIN. [Suspect]
     Active Substance: RIBAVIRIN
     Indication: HEPATITIS C
     Dosage: 800 MG
     Route: 065
     Dates: start: 20140924

REACTIONS (6)
  - Asthenia [Fatal]
  - Femur fracture [Fatal]
  - Fall [Unknown]
  - Gastrointestinal disorder [Fatal]
  - Ascites [Fatal]
  - Generalised oedema [Fatal]

NARRATIVE: CASE EVENT DATE: 20150108
